FAERS Safety Report 9895336 (Version 1)
Quarter: 2014Q1

REPORT INFORMATION
  Report Type: Spontaneous
  Country: US (occurrence: US)
  Receive Date: 20140213
  Receipt Date: 20140213
  Transmission Date: 20141002
  Serious: No
  Sender: FDA-Public Use
  Company Number: US-BRISTOL-MYERS SQUIBB COMPANY-18951541

PATIENT
  Age: 57 Year
  Sex: Female
  Weight: 92.97 kg

DRUGS (4)
  1. ABATACEPT SUBQ INJECTION 125MG/ML [Suspect]
     Indication: RHEUMATOID ARTHRITIS
     Dosage: LAST INJECTION: 15MAY2013
     Route: 058
     Dates: start: 20130508
  2. PREDNISONE [Concomitant]
     Dosage: 1 DF: 15MG/1 WEEK AND THEN TAPER OFF
  3. BENADRYL [Concomitant]
     Dosage: 3 DOSES
  4. ULTRAM [Concomitant]

REACTIONS (2)
  - Pain in extremity [Unknown]
  - Hypoaesthesia [Unknown]
